FAERS Safety Report 23046935 (Version 1)
Quarter: 2023Q4

REPORT INFORMATION
  Report Type: Spontaneous
  Country: US (occurrence: US)
  Receive Date: 20231009
  Receipt Date: 20231009
  Transmission Date: 20240110
  Serious: No
  Sender: FDA-Public Use
  Company Number: US-SANDOZ-SDZ2023US039671

PATIENT
  Sex: Female

DRUGS (1)
  1. METHOTREXATE [Suspect]
     Active Substance: METHOTREXATE
     Indication: Product used for unknown indication
     Dosage: UNK
     Route: 065
     Dates: start: 20211005, end: 20211017

REACTIONS (7)
  - Drug ineffective [Unknown]
  - Mouth ulceration [Unknown]
  - Nausea [Unknown]
  - Psoriasis [Unknown]
  - Contraindication to medical treatment [Unknown]
  - Drug intolerance [Unknown]
  - Drug hypersensitivity [Unknown]
